FAERS Safety Report 20625027 (Version 1)
Quarter: 2022Q1

REPORT INFORMATION
  Report Type: Report from Study
  Country: GB (occurrence: GB)
  Receive Date: 20220323
  Receipt Date: 20220323
  Transmission Date: 20220423
  Serious: Yes (Other)
  Sender: FDA-Public Use
  Company Number: GB-NOVARTISPH-NVSC2022GB060868

PATIENT
  Sex: Female

DRUGS (2)
  1. COSENTYX [Suspect]
     Active Substance: SECUKINUMAB
     Indication: Psoriatic arthropathy
     Dosage: 150 MG, QW (FOR WEEKS 0,1,2,3 AND MONTHLY FROM 4 ONWARDS)
     Route: 058
     Dates: start: 20220303
  2. COSENTYX [Suspect]
     Active Substance: SECUKINUMAB
     Dosage: 150 MG, QW
     Route: 058
     Dates: start: 20220310

REACTIONS (3)
  - Diarrhoea haemorrhagic [Unknown]
  - Illness [Unknown]
  - Diarrhoea [Unknown]
